FAERS Safety Report 10729393 (Version 1)
Quarter: 2015Q1

REPORT INFORMATION
  Report Type: Report from Study
  Country: DE (occurrence: DE)
  Receive Date: 20150122
  Receipt Date: 20150122
  Transmission Date: 20150721
  Serious: Yes (Hospitalization, Disabling)
  Sender: FDA-Public Use
  Company Number: PHHO2015DE000920

PATIENT
  Age: 87 Year
  Sex: Female
  Weight: 70 kg

DRUGS (5)
  1. EYLEA [Suspect]
     Active Substance: AFLIBERCEPT
     Route: 031
     Dates: start: 20141028, end: 20141028
  2. AMLODIPIN [Concomitant]
     Active Substance: AMLODIPINE BESYLATE
     Indication: HYPERTENSION
     Dosage: 5 MG, QD
     Route: 065
     Dates: start: 2011
  3. EYLEA [Suspect]
     Active Substance: AFLIBERCEPT
     Indication: AGE-RELATED MACULAR DEGENERATION
     Route: 031
     Dates: start: 20140826
  4. IBUPROFEN. [Suspect]
     Active Substance: IBUPROFEN
     Indication: INTERVERTEBRAL DISC PROTRUSION
     Dosage: 600 MG, PRN
     Route: 065
     Dates: start: 20140923
  5. METOPROLOL [Concomitant]
     Active Substance: METOPROLOL
     Indication: HYPERTENSION
     Dosage: 25 MG, QD
     Route: 065
     Dates: start: 2011

REACTIONS (8)
  - Polyneuropathy [Not Recovered/Not Resolved]
  - Extrasystoles [Not Recovered/Not Resolved]
  - Syncope [Recovered/Resolved]
  - Gastrointestinal infection [Recovered/Resolved]
  - Lacunar infarction [Not Recovered/Not Resolved]
  - Urinary tract infection [Recovered/Resolved]
  - Chronic kidney disease [Not Recovered/Not Resolved]
  - Dehydration [Recovered/Resolved]

NARRATIVE: CASE EVENT DATE: 20141127
